FAERS Safety Report 21550018 (Version 1)
Quarter: 2022Q4

REPORT INFORMATION
  Report Type: Other
  Country: None (occurrence: CN)
  Receive Date: 20221103
  Receipt Date: 20221103
  Transmission Date: 20230112
  Serious: Yes (Other)
  Sender: FDA-Public Use
  Company Number: CN-B.Braun Medical Inc.-2134466

PATIENT
  Age: 5 Day
  Sex: Male

DRUGS (1)
  1. ACETAMINOPHEN [Suspect]
     Active Substance: ACETAMINOPHEN

REACTIONS (2)
  - Foetal exposure during pregnancy [Unknown]
  - Neonatal asphyxia [Unknown]
